FAERS Safety Report 20443071 (Version 1)
Quarter: 2022Q1

REPORT INFORMATION
  Report Type: Spontaneous
  Country: US (occurrence: None)
  Receive Date: 20220207
  Receipt Date: 20220207
  Transmission Date: 20220424
  Serious: Yes (Other)
  Sender: FDA-Public Use
  Company Number: None

PATIENT
  Age: 36 Year
  Sex: Female
  Weight: 103.05 kg

DRUGS (1)
  1. SUBUTEX [Suspect]
     Active Substance: BUPRENORPHINE HYDROCHLORIDE
     Indication: Dependence
     Dosage: FREQUENCY : 3 TIMES A DAY;?
     Route: 060
     Dates: start: 20121001, end: 20200803

REACTIONS (4)
  - Tooth erosion [None]
  - Dental caries [None]
  - Abscess [None]
  - Tooth extraction [None]

NARRATIVE: CASE EVENT DATE: 20161019
